FAERS Safety Report 7410378-2 (Version None)
Quarter: 2011Q2

REPORT INFORMATION
  Report Type: 
  Country: None (occurrence: None)
  Receive Date: 20110412
  Receipt Date: 20110401
  Transmission Date: 20111010
  Serious: Yes (Death, Congenital Anomaly, Other)
  Sender: FDA-Public Use
  Company Number: IT-WATSON-2011-05040

PATIENT

DRUGS (2)
  1. DOXORUBICIN [Suspect]
     Indication: DRUG EXPOSURE DURING PREGNANCY
     Dosage: UNK
     Route: 064
  2. EPIRUBICIN HYDROCHLORIDE [Suspect]
     Indication: DRUG EXPOSURE DURING PREGNANCY
     Dosage: UNK
     Route: 064

REACTIONS (6)
  - FOETAL GROWTH RESTRICTION [None]
  - CONGENITAL CYSTIC KIDNEY DISEASE [None]
  - NEUTROPENIA [None]
  - ANAEMIA [None]
  - STILLBIRTH [None]
  - NEONATAL RESPIRATORY DISTRESS SYNDROME [None]
